FAERS Safety Report 8487623 (Version 6)
Quarter: 2014Q2

REPORT INFORMATION
  Report Type: Spontaneous
  Country: US (occurrence: US)
  Receive Date: 20120402
  Receipt Date: 20140519
  Transmission Date: 20141212
  Serious: Yes (Hospitalization, Other)
  Sender: FDA-Public Use
  Company Number: US-GLAXOSMITHKLINE-A0971913A

PATIENT
  Sex: Female

DRUGS (2)
  1. ADVAIR [Suspect]
     Indication: PRODUCT USED FOR UNKNOWN INDICATION
     Route: 055
     Dates: start: 20120515
  2. COMBIVENT RESPIMAT [Concomitant]

REACTIONS (9)
  - Viral infection [Unknown]
  - Malaise [Unknown]
  - Nausea [Unknown]
  - Neoplasm malignant [Not Recovered/Not Resolved]
  - Haemoglobin decreased [Unknown]
  - Nasopharyngitis [Unknown]
  - Asthenia [Unknown]
  - Cerebrovascular accident [Unknown]
  - Emotional distress [Unknown]
